FAERS Safety Report 18915530 (Version 1)
Quarter: 2021Q1

REPORT INFORMATION
  Report Type: Spontaneous
  Country: US (occurrence: US)
  Receive Date: 20210218
  Receipt Date: 20210218
  Transmission Date: 20210420
  Serious: No
  Sender: FDA-Public Use
  Company Number: None

PATIENT
  Age: 47 Year
  Sex: Male

DRUGS (1)
  1. BOSENTAN 62.5MG TABLETS 60/BO: (TEVA) [Suspect]
     Active Substance: BOSENTAN
     Indication: PULMONARY ARTERIAL HYPERTENSION
     Route: 048
     Dates: start: 20210125

REACTIONS (4)
  - Somnolence [None]
  - Impaired work ability [None]
  - Fatigue [None]
  - Nasal congestion [None]

NARRATIVE: CASE EVENT DATE: 20210130
